FAERS Safety Report 10221982 (Version 1)
Quarter: 2014Q2

REPORT INFORMATION
  Report Type: Spontaneous
  Country: JP (occurrence: JP)
  Receive Date: 20140606
  Receipt Date: 20140606
  Transmission Date: 20141212
  Serious: Yes (Other)
  Sender: FDA-Public Use
  Company Number: JP-ASTRAZENECA-2014SE37323

PATIENT
  Age: 28 Year
  Sex: Female
  Weight: 49 kg

DRUGS (5)
  1. ANAPEINE [Suspect]
     Indication: EPIDURAL ANAESTHESIA
     Route: 008
  2. ANAPEINE [Suspect]
     Indication: EPIDURAL ANAESTHESIA
     Route: 008
  3. MARCAIN SPINAL INJECTION [Concomitant]
     Indication: SPINAL ANAESTHESIA
     Route: 029
  4. FENTANYL [Concomitant]
     Indication: EPIDURAL ANAESTHESIA
     Route: 008
  5. ISOTONIC SODIUM CHLORIDE SOLUTION [Concomitant]
     Indication: EPIDURAL ANAESTHESIA
     Route: 008

REACTIONS (2)
  - Hypoaesthesia [Recovering/Resolving]
  - Gait disturbance [Recovering/Resolving]
